FAERS Safety Report 19738464 (Version 8)
Quarter: 2022Q4

REPORT INFORMATION
  Report Type: Spontaneous
  Country: FR (occurrence: FR)
  Receive Date: 20210823
  Receipt Date: 20221031
  Transmission Date: 20230113
  Serious: Yes (Life-Threatening, Other)
  Sender: FDA-Public Use
  Company Number: FR-BIOGARAN-B21000330

PATIENT
  Age: 49 Year
  Sex: Female

DRUGS (12)
  1. LETROZOLE [Suspect]
     Active Substance: LETROZOLE
     Indication: Breast cancer
     Dosage: UNK
     Route: 065
     Dates: start: 201607
  2. CAPECITABINE [Suspect]
     Active Substance: CAPECITABINE
     Indication: Breast cancer metastatic
     Dosage: UNK
     Route: 065
  3. CAPECITABINE [Suspect]
     Active Substance: CAPECITABINE
     Dosage: OF 5 DAYS PER 7
     Route: 065
  4. CAPECITABINE [Suspect]
     Active Substance: CAPECITABINE
     Dosage: OF 5 DAYS PER 7
     Route: 065
  5. PACLITAXEL [Suspect]
     Active Substance: PACLITAXEL
     Indication: Breast cancer
     Dosage: UNK
     Route: 065
  6. PACLITAXEL [Suspect]
     Active Substance: PACLITAXEL
     Indication: Breast cancer metastatic
     Dosage: UNK
     Route: 065
  7. FULVESTRANT [Suspect]
     Active Substance: FULVESTRANT
     Indication: Breast cancer metastatic
     Dosage: UNK
     Route: 065
  8. FULVESTRANT [Suspect]
     Active Substance: FULVESTRANT
     Dosage: UNK
     Route: 065
     Dates: start: 201807
  9. PALBOCICLIB [Suspect]
     Active Substance: PALBOCICLIB
     Indication: Breast cancer metastatic
     Dosage: UNK
     Route: 065
  10. PALBOCICLIB [Suspect]
     Active Substance: PALBOCICLIB
     Dosage: UNK
     Route: 065
     Dates: start: 201807
  11. TRASTUZUMAB [Concomitant]
     Active Substance: TRASTUZUMAB
     Indication: Product used for unknown indication
     Dosage: UNK
     Route: 065
  12. PERTUZUMAB [Concomitant]
     Active Substance: PERTUZUMAB
     Dosage: UNK
     Route: 065

REACTIONS (9)
  - Therapeutic product effect incomplete [Unknown]
  - Drug ineffective [Unknown]
  - Drug resistance [Unknown]
  - Breast cancer [Unknown]
  - Malignant neoplasm progression [Unknown]
  - Metastases to bone [Recovered/Resolved]
  - Treatment failure [Unknown]
  - Metastases to liver [Recovered/Resolved]
  - Breast cancer recurrent [Recovered/Resolved]

NARRATIVE: CASE EVENT DATE: 20180701
